FAERS Safety Report 7062929-8 (Version None)
Quarter: 2010Q4

REPORT INFORMATION
  Report Type: 
  Country: None (occurrence: None)
  Receive Date: 20101026
  Receipt Date: 20101018
  Transmission Date: 20110411
  Serious: Yes (Hospitalization, Other)
  Sender: FDA-Public Use
  Company Number: AU-ABBOTT-10P-008-0678712-00

PATIENT
  Sex: Female

DRUGS (1)
  1. REDUCTIL [Suspect]
     Indication: PRODUCT USED FOR UNKNOWN INDICATION

REACTIONS (2)
  - BLOOD PRESSURE ABNORMAL [None]
  - PERIPHERAL EMBOLISM [None]
